FAERS Safety Report 4521976-8 (Version None)
Quarter: 2004Q4

REPORT INFORMATION
  Report Type: 
  Country: None (occurrence: None)
  Receive Date: 20041206
  Receipt Date: 20041123
  Transmission Date: 20050328
  Serious: Yes (Disabling, Other)
  Sender: FDA-Public Use
  Company Number: 2004098230

PATIENT
  Sex: Male

DRUGS (1)
  1. LIPITOR [Suspect]
     Indication: BLOOD CHOLESTEROL
     Dates: end: 20041122

REACTIONS (9)
  - ABASIA [None]
  - ACTIVITIES OF DAILY LIVING IMPAIRED [None]
  - BACK PAIN [None]
  - DIABETES MELLITUS [None]
  - HYPOAESTHESIA [None]
  - MUSCLE DISORDER [None]
  - PAIN [None]
  - PARAESTHESIA [None]
  - PHLEBITIS [None]
